FAERS Safety Report 9738409 (Version 2)
Quarter: 2015Q3

REPORT INFORMATION
  Report Type: Report from Study
  Country: GB (occurrence: GB)
  Receive Date: 20131208
  Receipt Date: 20150908
  Transmission Date: 20151125
  Serious: Yes (Hospitalization)
  Sender: FDA-Public Use
  Company Number: GB-ROCHE-1313416

PATIENT
  Sex: Female

DRUGS (23)
  1. SIMVASTATIN. [Concomitant]
     Active Substance: SIMVASTATIN
     Dosage: AT NIGHT
     Route: 048
  2. ZOPICLONE [Concomitant]
     Active Substance: ZOPICLONE
     Dosage: AT NIGHT
     Route: 048
  3. LORATADINE. [Concomitant]
     Active Substance: LORATADINE
     Dosage: IN THE MORNING (8:00)
     Route: 048
  4. CARBIMAZOLE [Concomitant]
     Active Substance: CARBIMAZOLE
     Dosage: DURATION: REVEIWED BY ENDOCRINOLOGIST
     Route: 048
  5. ADCAL-D3 [Concomitant]
     Active Substance: CALCIUM CARBONATE\CHOLECALCIFEROL
     Dosage: 1.5G/400UNITS; TWICE A DAY (8:00 AND 18:00) EVERY DAY
     Route: 048
  6. PARACETAMOL [Concomitant]
     Active Substance: ACETAMINOPHEN
     Dosage: 500-1000 MG, FOUR TIMES A DAY (8:00,12:00, 18:00, 22:00), EVERY DAY, ROUTE : IV/ORAL
     Route: 065
  7. CARBIMAZOLE [Concomitant]
     Active Substance: CARBIMAZOLE
     Dosage: IN MORNING
     Route: 048
  8. LANSOPRAZOLE. [Concomitant]
     Active Substance: LANSOPRAZOLE
     Dosage: IN MORNING
     Route: 048
  9. PREDNISOLONE. [Concomitant]
     Active Substance: PREDNISOLONE
     Route: 048
  10. IBANDRONIC ACID [Concomitant]
     Active Substance: IBANDRONIC ACID
     Route: 048
     Dates: start: 20141023
  11. HYDROXOCOBALAMIN [Concomitant]
     Active Substance: HYDROXOCOBALAMIN
     Dosage: 1MG/1ML, REGULARLY FROM 10:00
     Route: 030
     Dates: start: 20141023
  12. PROPRANOLOL [Concomitant]
     Active Substance: PROPRANOLOL\PROPRANOLOL HYDROCHLORIDE
     Dosage: IN MORNING
     Route: 048
  13. OMEPRAZOLE. [Concomitant]
     Active Substance: OMEPRAZOLE
     Dosage: TWICE PER DAY FOR 2 WEEKS AND THEN REVERTED TO 40 MG ONCE DAILY
     Route: 048
  14. BUPRENORPHINE. [Concomitant]
     Active Substance: BUPRENORPHINE
     Dosage: 10 MG/1 HOUR, IN THE MORNING (8:00) ON EACH WEDNESDAY
     Route: 062
  15. AMITRIPTYLINE [Concomitant]
     Active Substance: AMITRIPTYLINE
     Dosage: AT NIGHT (22:00)
     Route: 048
  16. FERROUS FUMARATE [Concomitant]
     Active Substance: FERROUS FUMARATE
     Dosage: 3 TIMES A DAY (8:00, 14:00, 22:00) EVERY DAY
     Route: 048
  17. CITALOPRAM [Concomitant]
     Active Substance: CITALOPRAM HYDROBROMIDE
     Dosage: IN THE MORNING (8:00) EVERY DAY
     Route: 048
  18. HYDROXOCOBALAMIN [Concomitant]
     Active Substance: HYDROXOCOBALAMIN
     Dosage: AS DIRECTED
     Route: 058
  19. RITUXIMAB [Suspect]
     Active Substance: RITUXIMAB
     Indication: RHEUMATOID ARTHRITIS
     Dosage: MOST RECENT DOSE OF RITUXIMAB WAS RECEIVED ON 22/SEP/2014
     Route: 065
     Dates: start: 20110715
  20. LANSOPRAZOLE. [Concomitant]
     Active Substance: LANSOPRAZOLE
     Route: 049
  21. METHOTREXATE [Concomitant]
     Active Substance: METHOTREXATE
     Dosage: 7.5MG/0.15ML, EVERY FRIDAY, RESTARTED  ON 31/OCT/2014
     Route: 058
     Dates: start: 20141023
  22. FOLIC ACID. [Concomitant]
     Active Substance: FOLIC ACID
     Dosage: IN THE MORNING (8:00), 5MG EVERY DAY EXCEPT FRIDAYS
     Route: 048
  23. CO-AMOXICLAV [Concomitant]
     Active Substance: AMOXICILLIN\CLAVULANIC ACID
     Dosage: 7 MORE DOSES REMAINING, DURATION WAS UPTO AND INCLUDING THE EVENING OF 22/JUN/2015
     Route: 048

REACTIONS (12)
  - Hyperthyroidism [Unknown]
  - Fall [Unknown]
  - Rheumatoid arthritis [Unknown]
  - Anaemia [Recovered/Resolved]
  - Diarrhoea [Unknown]
  - Chest pain [Unknown]
  - Lower respiratory tract infection [Recovering/Resolving]
  - Vomiting [Unknown]
  - Musculoskeletal pain [Unknown]
  - Gastric ulcer [Unknown]
  - Haematemesis [Unknown]
  - Hypertension [Unknown]
